FAERS Safety Report 9408707 (Version 1)
Quarter: 2013Q3

REPORT INFORMATION
  Report Type: Spontaneous
  Country: FR (occurrence: FR)
  Receive Date: 20130718
  Receipt Date: 20130718
  Transmission Date: 20140515
  Serious: Yes (Hospitalization)
  Sender: FDA-Public Use
  Company Number: FR-B.I. PHARMACEUTICALS,INC./RIDGEFIELD-2013-FF-01861FF

PATIENT
  Age: 0 Day
  Sex: Female
  Weight: 2.78 kg

DRUGS (4)
  1. VIRAMUNE [Suspect]
     Indication: EXPOSURE DURING PREGNANCY
     Route: 064
     Dates: end: 20130615
  2. VIRAMUNE [Suspect]
     Dosage: 50MG/5ML
     Route: 048
     Dates: start: 20130615
  3. TRUVADA [Suspect]
     Indication: EXPOSURE DURING PREGNANCY
     Route: 064
     Dates: end: 20130615
  4. RETROVIR [Suspect]
     Indication: EXPOSURE DURING PREGNANCY
     Route: 064
     Dates: start: 20130615, end: 20130615

REACTIONS (4)
  - Blood creatine phosphokinase increased [Recovered/Resolved]
  - Blood lactate dehydrogenase increased [Recovered/Resolved]
  - Transaminases increased [Recovered/Resolved]
  - Gamma-glutamyltransferase increased [Recovered/Resolved]
